FAERS Safety Report 20080396 (Version 1)
Quarter: 2021Q4

REPORT INFORMATION
  Report Type: Spontaneous
  Country: US (occurrence: US)
  Receive Date: 20211117
  Receipt Date: 20211117
  Transmission Date: 20220303
  Serious: Yes (Other)
  Sender: FDA-Public Use
  Company Number: US-AMGEN-USASP2021178534

PATIENT
  Age: 35 Year
  Sex: Male

DRUGS (4)
  1. CINACALCET HYDROCHLORIDE [Suspect]
     Active Substance: CINACALCET HYDROCHLORIDE
     Indication: Hyperparathyroidism secondary
     Dosage: UNK
     Route: 065
  2. ETELCALCETIDE [Suspect]
     Active Substance: ETELCALCETIDE
     Indication: Hyperparathyroidism secondary
     Dosage: UNK
     Route: 042
  3. CALCITRIOL [Concomitant]
     Active Substance: CALCITRIOL
     Indication: Hyperparathyroidism secondary
  4. SEVELAMER [Concomitant]
     Active Substance: SEVELAMER
     Indication: Hyperparathyroidism secondary
     Dosage: UNK

REACTIONS (4)
  - Parathyroid hyperplasia [Not Recovered/Not Resolved]
  - Treatment noncompliance [Unknown]
  - Therapeutic product effect incomplete [Unknown]
  - Hypocalcaemia [Recovering/Resolving]
